FAERS Safety Report 17053998 (Version 3)
Quarter: 2020Q1

REPORT INFORMATION
  Report Type: Spontaneous
  Country: US (occurrence: US)
  Receive Date: 20191120
  Receipt Date: 20200225
  Transmission Date: 20200409
  Serious: Yes (Other)
  Sender: FDA-Public Use
  Company Number: US-PFIZER INC-2019496616

PATIENT
  Age: 22 Year
  Sex: Female
  Weight: 48 kg

DRUGS (1)
  1. DOXYCYCLINE HYCLATE. [Suspect]
     Active Substance: DOXYCYCLINE HYCLATE
     Indication: ACNE
     Dosage: 100 MG, DAILY
     Route: 048

REACTIONS (1)
  - Autoimmune hepatitis [Recovered/Resolved]
